FAERS Safety Report 5264379-3 (Version None)
Quarter: 2007Q1

REPORT INFORMATION
  Report Type: 
  Country: None (occurrence: None)
  Receive Date: 20070309
  Receipt Date: 20070220
  Transmission Date: 20070707
  Serious: Yes (Other)
  Sender: FDA-Public Use
  Company Number: 2006SP005107

PATIENT
  Age: 15 Year
  Sex: Female

DRUGS (2)
  1. ASMANEX (MOMETASONE FUROATE (ORAL))  (MOMETASONE FUROATE) [Suspect]
     Indication: ASTHMA
  2. SYMBICORT [Concomitant]

REACTIONS (1)
  - HEADACHE [None]
